FAERS Safety Report 17293809 (Version 1)
Quarter: 2020Q1

REPORT INFORMATION
  Report Type: Spontaneous
  Country: US (occurrence: US)
  Receive Date: 20200121
  Receipt Date: 20200121
  Transmission Date: 20200409
  Serious: Yes (Hospitalization, Other)
  Sender: FDA-Public Use
  Company Number: US-ALEMBIC PHARMACUETICALS LIMITED-2020SCAL000027

PATIENT

DRUGS (2)
  1. VENLAFAXINE [Suspect]
     Active Substance: VENLAFAXINE HYDROCHLORIDE
     Indication: PRODUCT USED FOR UNKNOWN INDICATION
     Dosage: UNK
  2. SERTRALINE [Concomitant]
     Active Substance: SERTRALINE HYDROCHLORIDE
     Indication: PRODUCT USED FOR UNKNOWN INDICATION
     Dosage: UNK

REACTIONS (12)
  - Systolic dysfunction [Recovered/Resolved]
  - Generalised tonic-clonic seizure [Unknown]
  - Ejection fraction decreased [Recovered/Resolved]
  - Cardiac arrest [Recovered/Resolved]
  - Suicide attempt [Unknown]
  - Brain death [Unknown]
  - Overdose [Unknown]
  - Cardiogenic shock [Recovered/Resolved]
  - Encephalopathy [Unknown]
  - Circulatory collapse [Recovered/Resolved]
  - Multiple organ dysfunction syndrome [Unknown]
  - Cardiomyopathy [Recovered/Resolved]
